FAERS Safety Report 4846014-9 (Version None)
Quarter: 2005Q4

REPORT INFORMATION
  Report Type: 
  Country: None (occurrence: None)
  Receive Date: 20051205
  Receipt Date: 20051205
  Transmission Date: 20060501
  Serious: Yes (Hospitalization, Other)
  Sender: FDA-Public Use
  Company Number: None

PATIENT
  Age: 58 Year
  Sex: Male
  Weight: 96.6162 kg

DRUGS (8)
  1. GEMCITABINE 1000 MG/ML LILLY [Suspect]
     Indication: PANCREATIC CARCINOMA
     Dosage: 1000 MG/M2 DAY 1 + 15 IV DRIP
     Route: 041
     Dates: start: 20041103, end: 20051006
  2. BEVACIZUMB 25 MG/ML GENENTECH [Suspect]
     Indication: PANCREATIC CARCINOMA
     Dosage: 10 MG/5KG DAY 1 + 15 IV DRIP
     Route: 041
     Dates: start: 20041103, end: 20051006
  3. CISPLATIN [Suspect]
     Indication: PANCREATIC CARCINOMA
     Dosage: 20 MG/M2 DAY 1 AND 15 IV DRIP
     Route: 041
     Dates: start: 20041103, end: 20051006
  4. NORVASC [Concomitant]
  5. ARANESP [Concomitant]
  6. GLYBURIDE [Concomitant]
  7. FISH OIL [Concomitant]
  8. M.V.I. [Concomitant]

REACTIONS (6)
  - DYSPNOEA [None]
  - GASTRIC VARICES [None]
  - GASTROINTESTINAL HAEMORRHAGE [None]
  - HAEMATOCRIT DECREASED [None]
  - HAEMOGLOBIN DECREASED [None]
  - MELAENA [None]
